FAERS Safety Report 17600299 (Version 2)
Quarter: 2020Q3

REPORT INFORMATION
  Report Type: Report from Study
  Country: GB (occurrence: GB)
  Receive Date: 20200330
  Receipt Date: 20200921
  Transmission Date: 20201102
  Serious: Yes (Hospitalization)
  Sender: FDA-Public Use
  Company Number: GB-MYLANLABS-2020M1032554

PATIENT
  Age: 57 Year
  Sex: Female

DRUGS (18)
  1. LOPERAMIDE [Concomitant]
     Active Substance: LOPERAMIDE
     Dosage: 2 MILLIGRAM, PRN (AS NEEDED)
     Route: 048
     Dates: start: 20151125
  2. TRASTUZUMAB. [Suspect]
     Active Substance: TRASTUZUMAB
     Indication: HER2 POSITIVE BREAST CANCER
     Dosage: 672 MILLIGRAM, Q3W
     Route: 042
     Dates: start: 20151217, end: 20181204
  3. DOCETAXEL. [Suspect]
     Active Substance: DOCETAXEL
     Indication: BREAST CANCER METASTATIC
     Dosage: 150 MILLIGRAM, Q3W
     Route: 042
     Dates: start: 20151126
  4. DOCETAXEL. [Suspect]
     Active Substance: DOCETAXEL
     Indication: HER2 POSITIVE BREAST CANCER
  5. LEVOFLOXACIN. [Concomitant]
     Active Substance: LEVOFLOXACIN
     Dosage: START DAY 5 FOLLOWING CHEMO FOR 10 DAYS
     Route: 048
     Dates: start: 20151130
  6. PERTUZUMAB. [Suspect]
     Active Substance: PERTUZUMAB
     Indication: BREAST CANCER METASTATIC
     Dosage: 420 MILLIGRAM, Q3W
     Route: 042
     Dates: start: 20151215, end: 20181204
  7. DENOSUMAB [Concomitant]
     Active Substance: DENOSUMAB
     Dosage: 120 MILLIGRAM
     Route: 058
     Dates: start: 20150723
  8. DOMPERIDONE [Concomitant]
     Active Substance: DOMPERIDONE
     Dosage: 10 MILLIGRAM, PRN (AS NEEDED)
     Route: 048
     Dates: start: 20151126
  9. IRON SULFATE [Concomitant]
     Active Substance: FERROUS SULFATE ANHYDROUS
     Indication: ANAEMIA
     Dosage: 200 MILLIGRAM
     Route: 048
  10. TRASTUZUMAB. [Suspect]
     Active Substance: TRASTUZUMAB
     Indication: BREAST CANCER METASTATIC
     Dosage: 882 MILLIGRAM, Q3W
     Route: 042
     Dates: start: 20151126
  11. LETROZOLE. [Suspect]
     Active Substance: LETROZOLE
     Indication: BREAST CANCER METASTATIC
     Dosage: 2.5 MEGABECQUEREL, QD
     Route: 048
     Dates: start: 20150709, end: 20151015
  12. TRASTUZUMAB EMTANSINE [Suspect]
     Active Substance: ADO-TRASTUZUMAB EMTANSINE
     Indication: HER2 POSITIVE BREAST CANCER
  13. DEXAMETHASONE. [Concomitant]
     Active Substance: DEXAMETHASONE
     Dosage: BD FOR THREE DAYS PRIOR TO CHEMOTHERAPY
     Route: 048
     Dates: start: 20151125
  14. LETROZOLE. [Suspect]
     Active Substance: LETROZOLE
     Indication: HER2 POSITIVE BREAST CANCER
  15. PERTUZUMAB. [Suspect]
     Active Substance: PERTUZUMAB
     Indication: HER2 POSITIVE BREAST CANCER
     Dosage: 840 MILLIGRAM, Q3W
     Route: 042
     Dates: start: 20151124, end: 20151124
  16. FLUCONAZOLE. [Concomitant]
     Active Substance: FLUCONAZOLE
     Dosage: START DAY 5 POST CHEMO FOR 7 DAYS
     Route: 048
     Dates: start: 20151130
  17. TRASTUZUMAB EMTANSINE [Suspect]
     Active Substance: ADO-TRASTUZUMAB EMTANSINE
     Indication: BREAST CANCER METASTATIC
     Dosage: 400 MILLIGRAM, Q3W
     Route: 042
     Dates: start: 20190214, end: 20190602
  18. CALCICHEW [Concomitant]
     Active Substance: CALCIUM CARBONATE
     Dosage: 1.25 GRAM
     Route: 048
     Dates: start: 20150723

REACTIONS (1)
  - Pulmonary embolism [Recovered/Resolved]

NARRATIVE: CASE EVENT DATE: 20160419
